FAERS Safety Report 18500190 (Version 1)
Quarter: 2020Q4

REPORT INFORMATION
  Report Type: Report from Study
  Country: US (occurrence: US)
  Receive Date: 20201113
  Receipt Date: 20201113
  Transmission Date: 20210114
  Serious: Yes (Other)
  Sender: FDA-Public Use
  Company Number: US-JNJFOC-20200722179

PATIENT
  Sex: Female
  Weight: 2.5 kg

DRUGS (1)
  1. SYMTUZA [Suspect]
     Active Substance: COBICISTAT\DARUNAVIR\EMTRICITABINE\TENOFOVIR ALAFENAMIDE
     Indication: HIV INFECTION
     Route: 064

REACTIONS (4)
  - Tuberous sclerosis complex [Unknown]
  - Ependymoma [Unknown]
  - Rhabdomyoma [Unknown]
  - Foetal exposure during pregnancy [Recovered/Resolved]
